FAERS Safety Report 16508626 (Version 1)
Quarter: 2019Q3

REPORT INFORMATION
  Report Type: Spontaneous
  Country: GB (occurrence: GB)
  Receive Date: 20190702
  Receipt Date: 20190702
  Transmission Date: 20191004
  Serious: Yes (Hospitalization)
  Sender: FDA-Public Use
  Company Number: GB-ROCHE-2343892

PATIENT
  Sex: Female

DRUGS (1)
  1. LUCENTIS [Suspect]
     Active Substance: RANIBIZUMAB
     Indication: PRODUCT USED FOR UNKNOWN INDICATION
     Route: 065

REACTIONS (10)
  - Cerebrovascular accident [Unknown]
  - Transient ischaemic attack [Unknown]
  - Urticaria [Unknown]
  - Migraine [Unknown]
  - Vision blurred [Unknown]
  - Dry eye [Unknown]
  - Visual impairment [Unknown]
  - Anaemia [Unknown]
  - Vitreous floaters [Unknown]
  - Pruritus [Unknown]
